FAERS Safety Report 4775469-3 (Version None)
Quarter: 2005Q3

REPORT INFORMATION
  Report Type: 
  Country: None (occurrence: None)
  Receive Date: 20050914
  Receipt Date: 20050315
  Transmission Date: 20060218
  Serious: Yes (Hospitalization)
  Sender: FDA-Public Use
  Company Number: 163-20785-05030369

PATIENT
  Age: 66 Year
  Sex: Male

DRUGS (5)
  1. THALOMID [Suspect]
     Indication: MULTIPLE MYELOMA
     Dosage: 50 MG, DAILY, ORAL
     Route: 048
     Dates: start: 20041126
  2. DEXAMETHASONE [Concomitant]
  3. FOLIC ACID [Concomitant]
  4. ASPIRIN [Concomitant]
  5. VITAMIN E [Concomitant]

REACTIONS (1)
  - ATRIAL FIBRILLATION [None]
